FAERS Safety Report 7755278-3 (Version None)
Quarter: 2011Q3

REPORT INFORMATION
  Report Type: 
  Country: None (occurrence: None)
  Receive Date: 20110916
  Receipt Date: 20110912
  Transmission Date: 20111222
  Serious: Yes (Hospitalization)
  Sender: FDA-Public Use
  Company Number: US-PFIZER INC-2011175967

PATIENT
  Sex: Female

DRUGS (2)
  1. SUTENT [Suspect]
     Dosage: 50 MG, DAILY X 28 DAYS Q 42 DAYS.
     Dates: start: 20110710, end: 20110729
  2. SUTENT [Suspect]
     Dosage: 50 MG, DAILY X 28 DAYS Q 42 DAYS.
     Dates: start: 20110821

REACTIONS (2)
  - PYREXIA [None]
  - SEPSIS [None]
